FAERS Safety Report 19677682 (Version 10)
Quarter: 2022Q2

REPORT INFORMATION
  Report Type: Report from Study
  Country: MX (occurrence: MX)
  Receive Date: 20210809
  Receipt Date: 20220523
  Transmission Date: 20220721
  Serious: Yes (Other)
  Sender: FDA-Public Use
  Company Number: NVSC2021MX179037

PATIENT
  Age: 40 Year
  Sex: Female

DRUGS (3)
  1. GILENYA [Suspect]
     Active Substance: FINGOLIMOD HYDROCHLORIDE
     Indication: Multiple sclerosis
     Dosage: 0.5 MG, QD
     Route: 048
     Dates: start: 202103
  2. GILENYA [Suspect]
     Active Substance: FINGOLIMOD HYDROCHLORIDE
     Dosage: 0.5 MG, QD
     Route: 048
     Dates: start: 20210301
  3. ROSEL [Concomitant]
     Indication: Influenza
     Dosage: UNK
     Route: 048
     Dates: start: 20220201

REACTIONS (21)
  - Uterine polyp [Not Recovered/Not Resolved]
  - Heavy menstrual bleeding [Recovering/Resolving]
  - Nervous system disorder [Unknown]
  - Muscle spasticity [Not Recovered/Not Resolved]
  - Asthenia [Not Recovered/Not Resolved]
  - Dysmenorrhoea [Not Recovered/Not Resolved]
  - Tremor [Recovering/Resolving]
  - Anger [Unknown]
  - Mood altered [Not Recovered/Not Resolved]
  - Vitreous floaters [Not Recovered/Not Resolved]
  - Limb discomfort [Not Recovered/Not Resolved]
  - Insomnia [Recovered/Resolved with Sequelae]
  - Pain [Unknown]
  - COVID-19 [Not Recovered/Not Resolved]
  - Fatigue [Recovered/Resolved with Sequelae]
  - Constipation [Unknown]
  - Gastrointestinal disorder [Unknown]
  - Pyrexia [Unknown]
  - Menstrual disorder [Unknown]
  - Fall [Recovering/Resolving]
  - Ovarian cyst [Unknown]

NARRATIVE: CASE EVENT DATE: 20210701
